FAERS Safety Report 9728177 (Version 1)
Quarter: 2013Q4

REPORT INFORMATION
  Report Type: Spontaneous
  Country: US (occurrence: None)
  Receive Date: 20131202
  Receipt Date: 20131202
  Transmission Date: 20140711
  Serious: Yes (Other)
  Sender: FDA-Public Use
  Company Number: None

PATIENT
  Age: 10 Year
  Sex: Female
  Weight: 28.58 kg

DRUGS (1)
  1. OXTELLAR XR [Suspect]
     Indication: CONVULSION
     Dosage: 600MG  PO  DAILY  TO BE STARTED ASAP
     Route: 048

REACTIONS (3)
  - Convulsion [None]
  - Condition aggravated [None]
  - Convulsion [None]
